FAERS Safety Report 4865454-5 (Version None)
Quarter: 2005Q4

REPORT INFORMATION
  Report Type: 
  Country: None (occurrence: None)
  Receive Date: 20051220
  Receipt Date: 20051205
  Transmission Date: 20060501
  Serious: Yes (Life-Threatening)
  Sender: FDA-Public Use
  Company Number: B0403156B

PATIENT
  Sex: Male

DRUGS (3)
  1. EPIVIR [Suspect]
     Indication: HIV INFECTION
     Dosage: TRANSPLACENTARY
  2. RETROVIR [Suspect]
     Indication: HIV INFECTION
     Dosage: 300 MG/TWICE PER DAY/TRANSPLACEN
  3. NEVIRAPINE [Suspect]
     Indication: HIV INFECTION
     Dosage: 200 MG/TWICE PER DAY/TRANSPLACEN

REACTIONS (12)
  - ANAEMIA MACROCYTIC [None]
  - ANAEMIA NEONATAL [None]
  - APGAR SCORE LOW [None]
  - BLOOD IMMUNOGLOBULIN G INCREASED [None]
  - BLOOD PH DECREASED [None]
  - CAESAREAN SECTION [None]
  - DRUG EXPOSURE DURING PREGNANCY [None]
  - HYPOTONIA NEONATAL [None]
  - NEONATAL HEPATOMEGALY [None]
  - OEDEMA NEONATAL [None]
  - PALLOR [None]
  - RESPIRATORY DISORDER NEONATAL [None]
